FAERS Safety Report 23475397 (Version 1)
Quarter: 2024Q1

REPORT INFORMATION
  Report Type: Report from Study
  Country: US (occurrence: US)
  Receive Date: 20240204
  Receipt Date: 20240204
  Transmission Date: 20240410
  Serious: No
  Sender: FDA-Public Use
  Company Number: US-EXELIXIS-CABO-22059316

PATIENT
  Age: 48 Year
  Sex: Male

DRUGS (6)
  1. CABOMETYX [Suspect]
     Active Substance: CABOZANTINIB S-MALATE
     Indication: Renal cancer
     Dosage: 60 MG, QD
     Route: 048
     Dates: start: 20221203
  2. URSODIOL [Concomitant]
     Active Substance: URSODIOL
  3. HUMALOG [Concomitant]
     Active Substance: INSULIN LISPRO
  4. KETOROLAC [Concomitant]
     Active Substance: KETOROLAC TROMETHAMINE
  5. LANTUS [Concomitant]
     Active Substance: INSULIN GLARGINE
  6. DICYCLOMINE [Concomitant]
     Active Substance: DICYCLOMINE HYDROCHLORIDE

REACTIONS (6)
  - Sensitive skin [Unknown]
  - Hair colour changes [Unknown]
  - Haemorrhoids [Recovered/Resolved]
  - Fatigue [Not Recovered/Not Resolved]
  - Nausea [Unknown]
  - Diarrhoea [Recovered/Resolved]

NARRATIVE: CASE EVENT DATE: 20221201
